FAERS Safety Report 10428067 (Version 2)
Quarter: 2014Q3

REPORT INFORMATION
  Report Type: Spontaneous
  Country: DE (occurrence: DE)
  Receive Date: 20140903
  Receipt Date: 20140905
  Transmission Date: 20150326
  Serious: Yes (Other)
  Sender: FDA-Public Use
  Company Number: DE-PFIZER INC-2014240127

PATIENT
  Age: 29 Year
  Sex: Female

DRUGS (4)
  1. PREGABALIN. [Suspect]
     Active Substance: PREGABALIN
     Indication: CONVULSION PROPHYLAXIS
     Dosage: 300 MG, 1X/DAY
     Route: 048
  2. BUPROPION [Suspect]
     Active Substance: BUPROPION
     Indication: WEIGHT CONTROL
     Dosage: 450 MG, DAILY
     Route: 048
  3. RIVAROXABAN [Concomitant]
     Active Substance: RIVAROXABAN
     Indication: THROMBOSIS
     Dosage: UNK
  4. BUPROPION [Suspect]
     Active Substance: BUPROPION
     Indication: DEPRESSION
     Dosage: 300 MG, UNK
     Route: 048

REACTIONS (1)
  - Substance abuse [Recovered/Resolved]
